FAERS Safety Report 12599172 (Version 1)
Quarter: 2016Q3

REPORT INFORMATION
  Report Type: Report from Study
  Country: US (occurrence: US)
  Receive Date: 20160727
  Receipt Date: 20160727
  Transmission Date: 20161109
  Serious: Yes (Death)
  Sender: FDA-Public Use
  Company Number: US-ASTRAZENECA-2016SE71167

PATIENT
  Age: 942 Month
  Sex: Female

DRUGS (1)
  1. TAGRISSO [Suspect]
     Active Substance: OSIMERTINIB
     Indication: LUNG NEOPLASM MALIGNANT
     Route: 048
     Dates: start: 20160523

REACTIONS (4)
  - Decreased appetite [Unknown]
  - Nausea [Unknown]
  - Death [Fatal]
  - Delusion [Unknown]

NARRATIVE: CASE EVENT DATE: 201607
